FAERS Safety Report 4489343-3 (Version None)
Quarter: 2004Q4

REPORT INFORMATION
  Report Type: 
  Country: None (occurrence: None)
  Receive Date: 20041029
  Receipt Date: 20041019
  Transmission Date: 20050328
  Serious: Yes (Life-Threatening, Hospitalization, Disabling)
  Sender: FDA-Public Use
  Company Number: US-MERCK-0410USA02915

PATIENT
  Age: 59 Year
  Sex: Male

DRUGS (18)
  1. VIOXX [Suspect]
     Indication: ARTHRITIS
     Route: 048
     Dates: start: 19990101
  2. VIOXX [Suspect]
     Route: 048
     Dates: start: 19990101
  3. INSULIN [Concomitant]
     Route: 065
  4. GLUCOPHAGE [Concomitant]
     Route: 065
  5. NEXIUM [Concomitant]
     Route: 065
  6. POTASSIUM CHLORIDE [Concomitant]
     Route: 065
  7. SYNTHROID [Concomitant]
     Route: 065
  8. HYDROXYZINE HYDROCHLORIDE [Concomitant]
     Route: 065
  9. NEURONTIN [Concomitant]
     Route: 065
  10. COREG [Concomitant]
     Route: 065
  11. LOPID [Concomitant]
     Route: 065
  12. COUMADIN [Concomitant]
     Route: 065
  13. LASIX [Concomitant]
     Route: 065
  14. HUMULIN [Concomitant]
     Route: 065
  15. DEMADEX [Concomitant]
     Route: 065
  16. COMBIVENT [Concomitant]
     Route: 065
  17. FLOVENT [Concomitant]
     Route: 065
  18. LORCET-HD [Concomitant]
     Route: 065

REACTIONS (5)
  - MOTOR DYSFUNCTION [None]
  - MYOCARDIAL INFARCTION [None]
  - OEDEMA PERIPHERAL [None]
  - PAIN IN EXTREMITY [None]
  - PULMONARY EMBOLISM [None]
